FAERS Safety Report 12836612 (Version 1)
Quarter: 2016Q4

REPORT INFORMATION
  Report Type: Spontaneous
  Country: IN (occurrence: IN)
  Receive Date: 20161011
  Receipt Date: 20161011
  Transmission Date: 20170207
  Serious: Yes (Other)
  Sender: FDA-Public Use
  Company Number: IN-CELGENEUS-IND-2016097208

PATIENT

DRUGS (1)
  1. THALIDOMIDE [Suspect]
     Active Substance: THALIDOMIDE
     Indication: LEPROSY
     Route: 048

REACTIONS (6)
  - Deep vein thrombosis [Unknown]
  - Somnolence [Unknown]
  - Constipation [Unknown]
  - Hypertension [Unknown]
  - Leprosy [Unknown]
  - Diabetes mellitus [Unknown]
